FAERS Safety Report 21783878 (Version 18)
Quarter: 2025Q1

REPORT INFORMATION
  Report Type: Spontaneous
  Country: US (occurrence: US)
  Receive Date: 20221227
  Receipt Date: 20250102
  Transmission Date: 20250409
  Serious: No
  Sender: PFIZER
  Company Number: US-PFIZER INC-PV202200129602

PATIENT
  Age: 84 Year
  Sex: Female
  Weight: 72.57 kg

DRUGS (3)
  1. PREMARIN [Suspect]
     Active Substance: ESTROGENS, CONJUGATED
     Indication: Hormone replacement therapy
  2. PREMARIN [Suspect]
     Active Substance: ESTROGENS, CONJUGATED
  3. PREMARIN [Suspect]
     Active Substance: ESTROGENS, CONJUGATED
     Dosage: 0.625MG TABLET ONE A DAY BY MOUTH SEVEN DAYS A WEEK
     Route: 048

REACTIONS (9)
  - Dysphemia [Unknown]
  - Asthenia [Unknown]
  - Pain [Unknown]
  - Confusional state [Unknown]
  - Malaise [Unknown]
  - Feeling abnormal [Unknown]
  - Sleep deficit [Not Recovered/Not Resolved]
  - Nasopharyngitis [Unknown]
  - Influenza [Not Recovered/Not Resolved]
